FAERS Safety Report 15541178 (Version 3)
Quarter: 2019Q1

REPORT INFORMATION
  Report Type: Report from Study
  Country: US (occurrence: US)
  Receive Date: 20181023
  Receipt Date: 20190115
  Transmission Date: 20190417
  Serious: Yes (Other)
  Sender: FDA-Public Use
  Company Number: PHEH2018US043899

PATIENT
  Sex: Male

DRUGS (3)
  1. ENTRESTO [Suspect]
     Active Substance: SACUBITRIL\VALSARTAN
     Indication: CARDIAC FAILURE
     Dosage: 50 OT (24 SACUBITRIL /26 VALSARTAN), BID
     Route: 048
  2. ENTRESTO [Suspect]
     Active Substance: SACUBITRIL\VALSARTAN
     Dosage: 100 MG (49 SACUBITRIL /51 VALSARTAN), BID
     Route: 048
  3. LISINOPRIL. [Concomitant]
     Active Substance: LISINOPRIL
     Indication: PRODUCT USED FOR UNKNOWN INDICATION

REACTIONS (14)
  - Angina pectoris [Unknown]
  - Weight decreased [Unknown]
  - Skin disorder [Unknown]
  - Drug interaction [Unknown]
  - Balance disorder [Unknown]
  - Back pain [Unknown]
  - Peripheral swelling [Unknown]
  - Visual impairment [Unknown]
  - Oedema peripheral [Unknown]
  - Swelling [Unknown]
  - Tremor [Unknown]
  - Dyspnoea [Unknown]
  - Abdominal pain upper [Unknown]
  - Hypoaesthesia [Unknown]
